FAERS Safety Report 12277659 (Version 5)
Quarter: 2019Q1

REPORT INFORMATION
  Report Type: Spontaneous
  Country: US (occurrence: US)
  Receive Date: 20160418
  Receipt Date: 20190325
  Transmission Date: 20190417
  Serious: Yes (Death, Other)
  Sender: FDA-Public Use
  Company Number: US-ASTRAZENECA-2016SE41008

PATIENT
  Age: 21512 Day
  Sex: Female
  Weight: 121.6 kg

DRUGS (45)
  1. ONGLYZA [Suspect]
     Active Substance: SAXAGLIPTIN HYDROCHLORIDE
     Indication: TYPE 2 DIABETES MELLITUS
     Route: 048
     Dates: start: 2013, end: 2014
  2. GLIPIZIDE. [Concomitant]
     Active Substance: GLIPIZIDE
     Dosage: 5.0MG UNKNOWN
     Dates: start: 20130109
  3. AMLODIPINE BESYLATE. [Concomitant]
     Active Substance: AMLODIPINE BESYLATE
     Dosage: 10.0MG UNKNOWN
     Dates: start: 20140805
  4. DOXEPIN HYDROCHLORIDE. [Concomitant]
     Active Substance: DOXEPIN HYDROCHLORIDE
     Dosage: 25.0MG UNKNOWN
  5. DEXILANT [Concomitant]
     Active Substance: DEXLANSOPRAZOLE
  6. BACLOFEN. [Concomitant]
     Active Substance: BACLOFEN
  7. FOSINOPRIL SODIUM. [Concomitant]
     Active Substance: FOSINOPRIL SODIUM
     Dosage: 40.0MG UNKNOWN
     Dates: start: 20130901
  8. ADVAIR DISKUS [Concomitant]
     Active Substance: FLUTICASONE PROPIONATE\SALMETEROL XINAFOATE
  9. NOVOLOG [Concomitant]
     Active Substance: INSULIN ASPART
     Dosage: 100UNIT/ML
     Dates: start: 20130105
  10. FLUOXETINE HYDROCHLORIDE. [Concomitant]
     Active Substance: FLUOXETINE HYDROCHLORIDE
     Dosage: 1000.0MG UNKNOWN
     Dates: start: 20130114
  11. TRILIPIX [Concomitant]
     Active Substance: FENOFIBRIC ACID
     Dosage: 135.0MG UNKNOWN
     Dates: start: 20130204
  12. ATENOLOL. [Concomitant]
     Active Substance: ATENOLOL
     Dosage: 100.0MG UNKNOWN
     Dates: start: 20130726
  13. TRIAMTERENE-HCTZ [Concomitant]
     Active Substance: HYDROCHLOROTHIAZIDE\TRIAMTERENE
     Dosage: 25.0MG UNKNOWN
     Dates: start: 20130808
  14. AMRIX [Concomitant]
     Active Substance: CYCLOBENZAPRINE HYDROCHLORIDE
     Dosage: 15.0MG UNKNOWN
     Dates: start: 20130121
  15. FLUCONAZOLE. [Concomitant]
     Active Substance: FLUCONAZOLE
  16. ESZOPICLONE. [Concomitant]
     Active Substance: ESZOPICLONE
  17. TRAMADOL HYDROCHLORIDE. [Concomitant]
     Active Substance: TRAMADOL HYDROCHLORIDE
  18. ONGLYZA [Suspect]
     Active Substance: SAXAGLIPTIN HYDROCHLORIDE
     Indication: TYPE 2 DIABETES MELLITUS
     Dosage: 5.0MG UNKNOWN
     Route: 048
     Dates: start: 20130112
  19. PRAVASTATIN SODIUM. [Concomitant]
     Active Substance: PRAVASTATIN SODIUM
     Dates: start: 20130206
  20. METOPROLOL SUCCINATE. [Concomitant]
     Active Substance: METOPROLOL SUCCINATE
     Dosage: 200.0MG UNKNOWN
     Dates: start: 20140110
  21. ZOLPIDEM TARTRATE. [Concomitant]
     Active Substance: ZOLPIDEM TARTRATE
  22. VOLTAREN [Concomitant]
     Active Substance: DICLOFENAC SODIUM
  23. POTASSIUM CHLORIDE. [Concomitant]
     Active Substance: POTASSIUM CHLORIDE
  24. KOMBIGLYZE XR [Suspect]
     Active Substance: METFORMIN HYDROCHLORIDE\SAXAGLIPTIN HYDROCHLORIDE
     Indication: TYPE 2 DIABETES MELLITUS
     Route: 048
     Dates: start: 2013, end: 2014
  25. METFORMIN [Concomitant]
     Active Substance: METFORMIN HYDROCHLORIDE
     Dosage: 1000.0MG UNKNOWN
     Dates: start: 20130109
  26. CHLORZOXAZONE. [Concomitant]
     Active Substance: CHLORZOXAZONE
     Dosage: 500.0MG UNKNOWN
     Dates: start: 20131031
  27. FLUZONE [Concomitant]
     Active Substance: INFLUENZA A VIRUS A/CALIFORNIA/7/2009 X-179A (H1N1) ANTIGEN (FORMALDEHYDE INACTIVATED)\INFLUENZA A VIRUS A/VICTORIA/210/2009 X-187 (H3N2) ANTIGEN (FORMALDEHYDE INACTIVATED)\INFLUENZA B VIRUS B/BRISBANE/60/2008 ANTIGEN (FORMALDEHYDE INACTIVATED)
  28. LYRICA [Concomitant]
     Active Substance: PREGABALIN
     Dosage: 200.0MG UNKNOWN
     Dates: start: 20130116
  29. DETROL [Concomitant]
     Active Substance: TOLTERODINE TARTRATE
     Dosage: 4.0MG UNKNOWN
     Dates: start: 20130202
  30. HYDROCHLOROTHIAZIDE. [Concomitant]
     Active Substance: HYDROCHLOROTHIAZIDE
     Dates: start: 20130218
  31. PROAIR HFA [Concomitant]
     Active Substance: ALBUTEROL SULFATE
  32. CLONIDINE HYDROCHLORIDE. [Concomitant]
     Active Substance: CLONIDINE HYDROCHLORIDE
  33. BENZONATATE. [Concomitant]
     Active Substance: BENZONATATE
  34. TIZANIDINE HYDROCHLORIDE. [Concomitant]
     Active Substance: TIZANIDINE HYDROCHLORIDE
     Dosage: 4.0MG UNKNOWN
     Dates: start: 20130711
  35. ALPRAZOLAM. [Concomitant]
     Active Substance: ALPRAZOLAM
     Dosage: 0.25MG UNKNOWN
     Dates: start: 20130711
  36. HYDROCODONE- ACETAMINOPHEN [Concomitant]
  37. SPIRONOLACTONE. [Concomitant]
     Active Substance: SPIRONOLACTONE
  38. LANTUS SOLOSTAR [Concomitant]
     Active Substance: INSULIN GLARGINE
     Dates: start: 20130206
  39. METANX [Concomitant]
     Active Substance: LEVOMEFOLATE CALCIUM\METHYLCOBALAMIN\PYRIDOXAL PHOSPHATE ANHYDROUS
     Dosage: 3-35-2MG
     Dates: start: 20130415
  40. AZITHROMYCIN ANHYDROUS. [Concomitant]
     Active Substance: AZITHROMYCIN ANHYDROUS
     Dosage: 250.0MG UNKNOWN
     Dates: start: 20130415
  41. CARVEDILOL. [Concomitant]
     Active Substance: CARVEDILOL
     Dosage: 12.5MG UNKNOWN
     Dates: start: 20140218
  42. TORSEMIDE. [Concomitant]
     Active Substance: TORSEMIDE
     Dosage: 20.0MG UNKNOWN
     Dates: start: 20140722
  43. CARTIA XT [Concomitant]
     Active Substance: DILTIAZEM HYDROCHLORIDE
  44. GUANFACINE HYDROCHLORIDE. [Concomitant]
     Active Substance: GUANFACINE HYDROCHLORIDE
  45. SULFAMETHOXAZOLE- TRIMETHOPRIM [Concomitant]

REACTIONS (6)
  - Respiratory failure [Unknown]
  - Cardiomegaly [Unknown]
  - Cardiac failure [Unknown]
  - Hypertensive heart disease [Fatal]
  - Cardiac failure congestive [Unknown]
  - Bundle branch block left [Unknown]

NARRATIVE: CASE EVENT DATE: 20140208
